FAERS Safety Report 7746401-5 (Version None)
Quarter: 2011Q3

REPORT INFORMATION
  Report Type: 
  Country: None (occurrence: None)
  Receive Date: 20110913
  Receipt Date: 20110913
  Transmission Date: 20111222
  Serious: No
  Sender: FDA-Public Use
  Company Number: None

PATIENT
  Age: 76 Year
  Sex: Male
  Weight: 53.07 kg

DRUGS (1)
  1. AVELOX [Suspect]

REACTIONS (1)
  - MYOCLONUS [None]
